FAERS Safety Report 7693158-2 (Version None)
Quarter: 2011Q3

REPORT INFORMATION
  Report Type: 
  Country: None (occurrence: None)
  Receive Date: 20110815
  Receipt Date: 20110802
  Transmission Date: 20111222
  Serious: Yes (Other)
  Sender: FDA-Public Use
  Company Number: 1000022753

PATIENT
  Age: 83 Year
  Sex: Male

DRUGS (7)
  1. EZETIMIBE [Suspect]
     Dosage: 10 MG (10 MG, 1 IN 1 D), ORAL
     Route: 048
     Dates: start: 20090218
  2. OFLOXACIN [Suspect]
     Indication: ESCHERICHIA INFECTION
     Dosage: 400 MG (400 MG, 1 IN 1 D), ORAL
     Route: 048
     Dates: start: 20090220, end: 20090303
  3. KARDEGIC (ACETYLSALICYLATE LYSINE) (ACETYLSALICYLATE LYSINE) [Concomitant]
  4. DOLIPRANE (PARACETALMOL) (PARACETAMOL) [Concomitant]
  5. NEBIVOLOL HCL [Suspect]
     Dosage: 5 MG (5 MG, 1 IN 1 D), ORAL
     Route: 048
     Dates: start: 20090219
  6. OFLOXACIN [Concomitant]
     Indication: ESCHERICHIA INFECTION
     Dosage: 200 MG/40 ML (1 IN 1 D), INTRAVENOUS (NOT OTHERWISE SPECIFIED)
     Route: 042
     Dates: start: 20090218, end: 20090219
  7. ATACAND [Suspect]
     Dosage: 16 MG (16 MG, 1 IN 1 D), ORAL
     Route: 048
     Dates: start: 20090219

REACTIONS (1)
  - MUSCLE RUPTURE [None]
